FAERS Safety Report 6987780-6 (Version None)
Quarter: 2010Q3

REPORT INFORMATION
  Report Type: 
  Country: None (occurrence: None)
  Receive Date: 20100916
  Receipt Date: 20100914
  Transmission Date: 20110219
  Serious: Yes (Death)
  Sender: FDA-Public Use
  Company Number: PHHY2010AR60719

PATIENT
  Sex: Male

DRUGS (1)
  1. EXELON [Suspect]
     Indication: AMNESIA
     Dosage: 6 MG, TWO TABLETS DAILY
     Route: 048
     Dates: start: 20050920

REACTIONS (2)
  - INFECTION [None]
  - RESPIRATORY ARREST [None]
